FAERS Safety Report 12891231 (Version 1)
Quarter: 2016Q4

REPORT INFORMATION
  Report Type: Spontaneous
  Country: US (occurrence: US)
  Receive Date: 20161026
  Receipt Date: 20161026
  Transmission Date: 20170207
  Serious: Yes (Hospitalization)
  Sender: FDA-Public Use
  Company Number: None

PATIENT
  Age: 68 Year
  Sex: Male
  Weight: 119 kg

DRUGS (2)
  1. OMEPRAZOLE. [Suspect]
     Active Substance: OMEPRAZOLE
  2. PHENOBARBITAL. [Suspect]
     Active Substance: PHENOBARBITAL

REACTIONS (6)
  - Mental status changes [None]
  - Seizure [None]
  - Therapy change [None]
  - Drug level decreased [None]
  - Somnolence [None]
  - Drug level increased [None]

NARRATIVE: CASE EVENT DATE: 20160912
